FAERS Safety Report 5449081-7 (Version None)
Quarter: 2007Q3

REPORT INFORMATION
  Report Type: 
  Country: None (occurrence: None)
  Receive Date: 20070911
  Receipt Date: 20070831
  Transmission Date: 20080115
  Serious: Yes (Hospitalization)
  Sender: FDA-Public Use
  Company Number: AU-AMGEN-US238659

PATIENT
  Sex: Male

DRUGS (11)
  1. PANITUMUMAB [Suspect]
     Indication: COLORECTAL CANCER
     Route: 042
     Dates: start: 20070220, end: 20070220
  2. PANITUMUMAB [Suspect]
     Route: 042
     Dates: start: 20070731, end: 20070731
  3. PANITUMUMAB [Suspect]
     Dates: start: 20070828
  4. IRINOTECAN HCL [Suspect]
     Route: 065
  5. FOLINIC ACID [Suspect]
     Route: 065
  6. FLUOROURACIL [Suspect]
     Route: 065
  7. NORFLOXACIN [Suspect]
     Route: 048
     Dates: start: 20070814
  8. ZINC [Concomitant]
     Route: 061
  9. MAGNESIUM SULFATE [Concomitant]
     Route: 042
     Dates: start: 20070605, end: 20070605
  10. KEFLEX [Concomitant]
     Route: 048
     Dates: start: 20070702
  11. CHLORAMPHENICOL [Concomitant]
     Route: 061
     Dates: start: 20070815

REACTIONS (1)
  - CELLULITIS [None]
